FAERS Safety Report 21506974 (Version 1)
Quarter: 2022Q4

REPORT INFORMATION
  Report Type: Spontaneous
  Country: US (occurrence: None)
  Receive Date: 20221025
  Receipt Date: 20221025
  Transmission Date: 20230112
  Serious: Yes (Hospitalization)
  Sender: FDA-Public Use
  Company Number: None

PATIENT
  Age: 60 Year
  Sex: Female
  Weight: 91.17 kg

DRUGS (16)
  1. IBRANCE [Suspect]
     Active Substance: PALBOCICLIB
     Indication: Breast cancer female
     Dosage: 125MG  3W,1WOFF  ORAL ?
     Route: 048
     Dates: start: 202011, end: 20221011
  2. ACETAMINOPHEN [Concomitant]
  3. ALBUTEROL [Concomitant]
  4. ALBUTEROL SULFATE HFA [Concomitant]
  5. AMLODIPINE [Concomitant]
  6. ASPIRIN [Concomitant]
     Active Substance: ASPIRIN
  7. DOCUSATE [Concomitant]
  8. ELIQUIS [Concomitant]
  9. ENALAPRIL [Concomitant]
  10. ISOSORBIDE MONOITRATE ER [Concomitant]
  11. METOPROLOL TARTRATE [Concomitant]
  12. ROSUVASTATIN [Concomitant]
  13. SENNA [Concomitant]
  14. SERTRALINE HCI [Concomitant]
  15. TRAMADOL [Concomitant]
  16. ERGOCALCIFEROL [Concomitant]
     Active Substance: ERGOCALCIFEROL

REACTIONS (1)
  - Malignant neoplasm progression [None]
